FAERS Safety Report 24433269 (Version 1)
Quarter: 2024Q4

REPORT INFORMATION
  Report Type: Spontaneous
  Country: GB (occurrence: GB)
  Receive Date: 20241014
  Receipt Date: 20241014
  Transmission Date: 20250115
  Serious: Yes (Other)
  Sender: INSUD PHARMA
  Company Number: None

PATIENT
  Age: 54 Year
  Sex: Female
  Weight: 63 kg

DRUGS (2)
  1. PROGESTERONE [Suspect]
     Active Substance: PROGESTERONE
     Indication: Hormone replacement therapy
     Dosage: 100 MILLIGRAM, QD, AT NIGHT
  2. ESTRADIOL [Concomitant]
     Active Substance: ESTRADIOL
     Indication: Hormone replacement therapy

REACTIONS (3)
  - Breast tenderness [Not Recovered/Not Resolved]
  - Breast swelling [Not Recovered/Not Resolved]
  - Weight increased [Not Recovered/Not Resolved]
